FAERS Safety Report 25387275 (Version 1)
Quarter: 2025Q2

REPORT INFORMATION
  Report Type: Spontaneous
  Country: US (occurrence: US)
  Receive Date: 20250602
  Receipt Date: 20250602
  Transmission Date: 20250717
  Serious: No
  Sender: ELI LILLY AND COMPANY
  Company Number: US-ELI_LILLY_AND_COMPANY-US202505019361

PATIENT
  Age: 69 Year

DRUGS (6)
  1. HUMULIN R U-500 [Suspect]
     Active Substance: INSULIN HUMAN
     Indication: Type 2 diabetes mellitus
     Route: 065
     Dates: start: 2015
  2. HUMULIN R U-500 [Suspect]
     Active Substance: INSULIN HUMAN
     Indication: Type 2 diabetes mellitus
     Route: 065
     Dates: start: 2015
  3. HUMULIN R U-500 [Suspect]
     Active Substance: INSULIN HUMAN
     Route: 065
     Dates: start: 202502
  4. HUMULIN R U-500 [Suspect]
     Active Substance: INSULIN HUMAN
     Route: 065
     Dates: start: 202502
  5. HUMULIN R U-500 [Suspect]
     Active Substance: INSULIN HUMAN
     Route: 065
     Dates: start: 20250521
  6. HUMULIN R U-500 [Suspect]
     Active Substance: INSULIN HUMAN
     Route: 065
     Dates: start: 20250521

REACTIONS (5)
  - Sleep disorder due to a general medical condition [Unknown]
  - Throat irritation [Unknown]
  - Blood glucose decreased [Unknown]
  - Blood glucose increased [Not Recovered/Not Resolved]
  - Drug ineffective [Not Recovered/Not Resolved]

NARRATIVE: CASE EVENT DATE: 20250201
